FAERS Safety Report 5756689-8 (Version None)
Quarter: 2008Q2

REPORT INFORMATION
  Report Type: 
  Country: None (occurrence: None)
  Receive Date: 20080603
  Receipt Date: 20080519
  Transmission Date: 20081010
  Serious: No
  Sender: FDA-Public Use
  Company Number: US-BAYER-200817285NA

PATIENT
  Age: 36 Year
  Sex: Female

DRUGS (1)
  1. AVELOX [Suspect]
     Indication: DRUG USE FOR UNKNOWN INDICATION
     Dosage: TOTAL DAILY DOSE: 400 MG  UNIT DOSE: 400 MG
     Route: 048
     Dates: start: 20080201, end: 20080205

REACTIONS (4)
  - HEADACHE [None]
  - NECK PAIN [None]
  - NEUROPATHY PERIPHERAL [None]
  - PARAESTHESIA [None]
